FAERS Safety Report 6940048-6 (Version None)
Quarter: 2010Q3

REPORT INFORMATION
  Report Type: 
  Country: None (occurrence: None)
  Receive Date: 20100825
  Receipt Date: 20100813
  Transmission Date: 20110219
  Serious: Yes (Congenital Anomaly, Other)
  Sender: FDA-Public Use
  Company Number: US-RANBAXY-2010US-35953

PATIENT

DRUGS (4)
  1. ZIDOVUDINE [Suspect]
     Indication: ANTIRETROVIRAL THERAPY
     Dosage: UNK, UNK
     Route: 065
     Dates: start: 20090318
  2. PREZISTA [Suspect]
     Indication: ANTIRETROVIRAL THERAPY
     Dosage: 1200 MG DAILY
     Route: 048
     Dates: start: 20090310
  3. RALTEGRAVIR [Suspect]
     Indication: ANTIRETROVIRAL THERAPY
     Dosage: 800MG, UNK
     Route: 048
     Dates: start: 20090319
  4. NORVIR [Suspect]
     Indication: ANTIRETROVIRAL THERAPY
     Dosage: UNK
     Route: 048
     Dates: start: 20100310

REACTIONS (3)
  - CONGENITAL ANOMALY IN OFFSPRING [None]
  - DRUG EXPOSURE DURING PREGNANCY [None]
  - LIVE BIRTH [None]
